FAERS Safety Report 9032737 (Version 1)
Quarter: 2013Q1

REPORT INFORMATION
  Report Type: Spontaneous
  Country: US (occurrence: US)
  Receive Date: 20130128
  Receipt Date: 20130128
  Transmission Date: 20140127
  Serious: Yes (Hospitalization)
  Sender: FDA-Public Use
  Company Number: US-BIOGENIDEC-2013BI006663

PATIENT
  Age: 36 Year
  Sex: Female

DRUGS (1)
  1. AVONEX [Suspect]
     Indication: MULTIPLE SCLEROSIS
     Route: 030
     Dates: start: 20030101, end: 20121222

REACTIONS (5)
  - Transient ischaemic attack [Recovered/Resolved]
  - Convulsion [Recovered/Resolved]
  - Hypoaesthesia [Not Recovered/Not Resolved]
  - Dysarthria [Recovered/Resolved]
  - Headache [Recovered/Resolved]
